FAERS Safety Report 4963793-0 (Version None)
Quarter: 2006Q1

REPORT INFORMATION
  Report Type: 
  Country: None (occurrence: None)
  Receive Date: 20060201
  Receipt Date: 20051118
  Transmission Date: 20060701
  Serious: No
  Sender: FDA-Public Use
  Company Number: 2005PV004587

PATIENT
  Age: 64 Year
  Sex: Female
  Weight: 103.4201 kg

DRUGS (6)
  1. BYETTA [Suspect]
     Indication: DIABETES MELLITUS NON-INSULIN-DEPENDENT
     Dosage: 10 + 5 MCG/BID; SC
     Route: 058
     Dates: start: 20050914, end: 20051005
  2. BYETTA [Suspect]
     Indication: DIABETES MELLITUS NON-INSULIN-DEPENDENT
     Dosage: 10 + 5 MCG/BID; SC
     Route: 058
     Dates: start: 20051006
  3. NOVOLOG PUMP [Concomitant]
  4. CATAPRES [Concomitant]
  5. COREG [Concomitant]
  6. HYDRODIURIL [Concomitant]

REACTIONS (3)
  - NAUSEA [None]
  - THERAPEUTIC RESPONSE UNEXPECTED [None]
  - WEIGHT DECREASED [None]
